FAERS Safety Report 17962390 (Version 1)
Quarter: 2020Q2

REPORT INFORMATION
  Report Type: Spontaneous
  Country: NL (occurrence: NL)
  Receive Date: 20200630
  Receipt Date: 20200630
  Transmission Date: 20200714
  Serious: Yes (Other)
  Sender: FDA-Public Use
  Company Number: NL-MYLANLABS-10P-114-0674608-00

PATIENT
  Age: 42 Year
  Sex: Male

DRUGS (8)
  1. KAPSOVIT [Concomitant]
  2. CLARITHROMYCIN. [Suspect]
     Active Substance: CLARITHROMYCIN
     Indication: PULMONARY TUBERCULOSIS
     Dosage: 1000 MILLIGRAM, QD
     Route: 048
  3. OMEPRAZOLE. [Concomitant]
     Active Substance: OMEPRAZOLE
  4. DOMPERIDONE [Concomitant]
     Active Substance: DOMPERIDONE
  5. INSULIN [Concomitant]
     Active Substance: INSULIN NOS
  6. LINEZOLID. [Interacting]
     Active Substance: LINEZOLID
     Dosage: DAILY DOSE: 600 (E2B UNIT: 003)
  7. LINEZOLID. [Interacting]
     Active Substance: LINEZOLID
     Indication: PRODUCT USED FOR UNKNOWN INDICATION
     Dosage: 150 MG, 2X/DAY
  8. CLOFAZIMINE [Concomitant]
     Active Substance: CLOFAZIMINE
     Indication: PULMONARY TUBERCULOSIS

REACTIONS (2)
  - Drug level increased [Recovered/Resolved]
  - Drug interaction [Recovered/Resolved]
